FAERS Safety Report 10109032 (Version 1)
Quarter: 2014Q2

REPORT INFORMATION
  Report Type: Spontaneous
  Country: US (occurrence: None)
  Receive Date: 20140423
  Receipt Date: 20140423
  Transmission Date: 20141212
  Serious: Yes (Hospitalization)
  Sender: FDA-Public Use
  Company Number: FK201401375

PATIENT
  Age: 68 Year
  Sex: Male

DRUGS (16)
  1. DOXORUBICIN [Suspect]
     Indication: DIFFUSE LARGE B-CELL LYMPHOMA STAGE IV
  2. CYCLOPHOSPHAMIDE [Suspect]
     Indication: DIFFUSE LARGE B-CELL LYMPHOMA STAGE IV
  3. PREDNISONE(PREDNISONE)(PREDNISONE) [Suspect]
     Indication: DIFFUSE LARGE B-CELL LYMPHOMA STAGE IV
  4. PREDNISONE(PREDNISONE)(PREDNISONE) [Suspect]
     Indication: PNEUMOCYSTIS JIROVECII PNEUMONIA
  5. PREDNISONE(PREDNISONE)(PREDNISONE) [Suspect]
     Indication: DECUBITUS ULCER
  6. CEFEPIME [Suspect]
     Indication: ESCHERICHIA INFECTION
  7. CEFEPIME [Suspect]
  8. CEFEPIME [Suspect]
     Indication: ESCHERICHIA INFECTION
  9. COTRIMOXAZOLE [Suspect]
     Indication: ESCHERICHIA INFECTION
  10. COTRIMOXAZOLE [Suspect]
  11. COTRIMOXAZOLE [Suspect]
     Indication: DECUBITUS ULCER
  12. VANCOMYCIN [Suspect]
     Indication: ESCHERICHIA INFECTION
  13. VANCOMYCIN [Suspect]
     Indication: PNEUMOCYSTIS JIROVECII PNEUMONIA
  14. VANCOMYCIN [Suspect]
     Indication: DECUBITUS ULCER
  15. RITUXIMAB [Suspect]
     Indication: DIFFUSE LARGE B-CELL LYMPHOMA STAGE IV
  16. VINCRISTINE(VINCRISTINE)(VINCRISTINE) [Suspect]
     Indication: DIFFUSE LARGE B-CELL LYMPHOMA STAGE IV

REACTIONS (10)
  - Hepatosplenic candidiasis [None]
  - Decubitus ulcer [None]
  - Escherichia sepsis [None]
  - Pneumocystis jirovecii pneumonia [None]
  - Febrile neutropenia [None]
  - Haematoma [None]
  - Haemoglobin decreased [None]
  - White blood cell count decreased [None]
  - Platelet count decreased [None]
  - Blood creatinine decreased [None]
